FAERS Safety Report 13997416 (Version 1)
Quarter: 2017Q3

REPORT INFORMATION
  Report Type: Spontaneous
  Country: BR (occurrence: BR)
  Receive Date: 20170921
  Receipt Date: 20170921
  Transmission Date: 20171128
  Serious: Yes (Hospitalization, Other)
  Sender: FDA-Public Use
  Company Number: BR-JNJFOC-20170920263

PATIENT
  Age: 0 Day

DRUGS (1)
  1. XARELTO [Suspect]
     Active Substance: RIVAROXABAN
     Indication: PRODUCT USED FOR UNKNOWN INDICATION
     Route: 064

REACTIONS (5)
  - Premature baby [Unknown]
  - Meconium aspiration syndrome [Unknown]
  - Fall [Unknown]
  - Foetal exposure during pregnancy [Unknown]
  - Head injury [Unknown]

NARRATIVE: CASE EVENT DATE: 20170914
